FAERS Safety Report 11142069 (Version 1)
Quarter: 2015Q2

REPORT INFORMATION
  Report Type: Spontaneous
  Country: US (occurrence: US)
  Receive Date: 20150527
  Receipt Date: 20150527
  Transmission Date: 20150821
  Serious: No
  Sender: FDA-Public Use
  Company Number: US-MALLINCKRODT-QSC-2014-0564

PATIENT
  Age: 50 Year
  Sex: Female

DRUGS (3)
  1. ESTROGEN NOS [Concomitant]
     Active Substance: ESTROGENS
     Dosage: UNK
  2. LYRICA [Concomitant]
     Active Substance: PREGABALIN
     Dosage: UNK
     Dates: start: 20140902
  3. H.P. ACTHAR [Suspect]
     Active Substance: CORTICOTROPIN
     Indication: MULTIPLE SCLEROSIS RELAPSE
     Dosage: 1 ML, QD
     Dates: start: 20140816, end: 20140825

REACTIONS (6)
  - Chest discomfort [Recovered/Resolved]
  - Migraine [Recovered/Resolved]
  - Malaise [Not Recovered/Not Resolved]
  - Peripheral swelling [Recovered/Resolved]
  - Weight increased [Unknown]
  - Drug ineffective [Recovered/Resolved]

NARRATIVE: CASE EVENT DATE: 201408
